FAERS Safety Report 23846084 (Version 3)
Quarter: 2025Q1

REPORT INFORMATION
  Report Type: Other
  Country: US (occurrence: US)
  Receive Date: 20240512
  Receipt Date: 20250120
  Transmission Date: 20250408
  Serious: No
  Sender: TRAVERE THERAPEUTICS
  Company Number: US-TRAVERE-2024TVT00403

PATIENT
  Age: 39 Year
  Sex: Female

DRUGS (1)
  1. FILSPARI [Suspect]
     Active Substance: SPARSENTAN
     Indication: IgA nephropathy
     Route: 048
     Dates: start: 20240418

REACTIONS (3)
  - Abdominal pain upper [Unknown]
  - Dyspepsia [Unknown]
  - Protein urine present [None]

NARRATIVE: CASE EVENT DATE: 20240422
